FAERS Safety Report 8587968-7 (Version None)
Quarter: 2012Q3

REPORT INFORMATION
  Report Type: 
  Country: None (occurrence: None)
  Receive Date: 20120813
  Receipt Date: 20120807
  Transmission Date: 20120928
  Serious: No
  Sender: FDA-Public Use
  Company Number: US-BIOGENIDEC-2012BI029739

PATIENT
  Age: 45 Year
  Sex: Female

DRUGS (7)
  1. AVONEX [Suspect]
     Route: 030
     Dates: start: 20120508, end: 20120508
  2. TYLENOL [Concomitant]
     Indication: PREMEDICATION
     Dates: start: 20120501
  3. ALEVE [Concomitant]
     Indication: PREMEDICATION
     Dates: start: 20120501
  4. AVONEX [Suspect]
     Indication: MULTIPLE SCLEROSIS
     Route: 030
     Dates: start: 20120501, end: 20120501
  5. AVONEX [Suspect]
     Route: 030
     Dates: start: 20120515, end: 20120515
  6. AVONEX [Suspect]
     Route: 030
     Dates: start: 20120522, end: 20120522
  7. AVONEX [Suspect]
     Route: 030
     Dates: start: 20120529

REACTIONS (5)
  - SUICIDAL IDEATION [None]
  - INJECTION SITE REACTION [None]
  - INJECTION SITE HAEMORRHAGE [None]
  - INFLUENZA LIKE ILLNESS [None]
  - DEPRESSION [None]
